FAERS Safety Report 22983001 (Version 2)
Quarter: 2023Q4

REPORT INFORMATION
  Report Type: Spontaneous
  Country: US (occurrence: US)
  Receive Date: 20230926
  Receipt Date: 20231129
  Transmission Date: 20240110
  Serious: Yes (Other)
  Sender: FDA-Public Use
  Company Number: US-JNJFOC-20230947307

PATIENT
  Age: 64 Year
  Sex: Female

DRUGS (1)
  1. ELMIRON [Suspect]
     Active Substance: PENTOSAN POLYSULFATE SODIUM
     Indication: Cystitis interstitial
     Dosage: TAKE 1 CAPSULE BY ORAL ROUTE 3 TIMES EVERY DAY WITH WATER, 1 HOUR BEFORE OR 2 HOUR AFTER A MEAL
     Route: 048
     Dates: end: 202308

REACTIONS (2)
  - Cystoid macular oedema [Unknown]
  - Maculopathy [Unknown]

NARRATIVE: CASE EVENT DATE: 20230801
